FAERS Safety Report 20729810 (Version 2)
Quarter: 2022Q3

REPORT INFORMATION
  Report Type: Spontaneous
  Country: HU (occurrence: HU)
  Receive Date: 20220420
  Receipt Date: 20220830
  Transmission Date: 20221027
  Serious: Yes (Other)
  Sender: FDA-Public Use
  Company Number: HU-LUPIN PHARMACEUTICALS INC.-2022-05831

PATIENT
  Age: 43 Year
  Sex: Female

DRUGS (6)
  1. AZITHROMYCIN [Interacting]
     Active Substance: AZITHROMYCIN
     Indication: COVID-19
     Dosage: 500 MG, QD
     Route: 065
  2. FAVIPIRAVIR [Interacting]
     Active Substance: FAVIPIRAVIR
     Indication: COVID-19
     Dosage: 1600 MILLIGRAM, BID (1ST DAY)
     Route: 065
  3. FAVIPIRAVIR [Interacting]
     Active Substance: FAVIPIRAVIR
     Dosage: 600 MILLIGRAM, BID
     Route: 065
  4. ENOXAPARIN [Suspect]
     Active Substance: ENOXAPARIN
     Indication: COVID-19
     Dosage: 0.6 MILLILITER, QD
     Route: 058
  5. VITAMIN D3 [Suspect]
     Active Substance: CHOLECALCIFEROL
     Indication: COVID-19
     Dosage: 8000 INTERNATIONAL UNIT, QD
     Route: 065
  6. COENZYME Q10 [Suspect]
     Active Substance: DIETARY SUPPLEMENT\UBIDECARENONE
     Indication: COVID-19
     Dosage: 2000 MG
     Route: 065

REACTIONS (3)
  - Sinus bradycardia [Recovered/Resolved]
  - Drug interaction [Unknown]
  - Off label use [Unknown]
